FAERS Safety Report 5692767-X (Version None)
Quarter: 2008Q2

REPORT INFORMATION
  Report Type: 
  Country: None (occurrence: None)
  Receive Date: 20080401
  Receipt Date: 20080317
  Transmission Date: 20081010
  Serious: Yes (Death, Hospitalization)
  Sender: FDA-Public Use
  Company Number: 2008S1004334

PATIENT
  Age: 87 Year
  Sex: Male

DRUGS (18)
  1. DOXYCYCLINE [Suspect]
     Indication: DRUG USE FOR UNKNOWN INDICATION
     Dosage: 100 MG; DAILY
     Dates: start: 20080226, end: 20080228
  2. CO-AMOXICLAV (SPEKTRAMOX /02043401/) [Suspect]
     Indication: DRUG USE FOR UNKNOWN INDICATION
     Dosage: 1.2 G; 3 TIMES A DAY
     Dates: start: 20080226, end: 20080229
  3. ATENOLOL [Concomitant]
  4. BACTROBAN [Concomitant]
  5. CALCICHEW D3 [Concomitant]
  6. CIPROFLOXACIN [Concomitant]
  7. CITALOPRAM HYDROBROMIDE [Concomitant]
  8. ENOXAPARIN SODIUM [Concomitant]
  9. FINASTERIDE [Concomitant]
  10. FUROSEMIDE [Concomitant]
  11. GLICLAZIDE [Concomitant]
  12. HALOPERIDOL [Concomitant]
  13. ISOSORBIDE MONONITRATE [Concomitant]
  14. LACTULOSE [Concomitant]
  15. LORAZEPAM [Concomitant]
  16. NICOTINELL [Concomitant]
  17. OXYBUTYNIN CHLORIDE [Concomitant]
  18. ZOPICLONE [Concomitant]

REACTIONS (3)
  - HEPATITIS ACUTE [None]
  - HEPATOCELLULAR INJURY [None]
  - LOWER RESPIRATORY TRACT INFECTION [None]
